FAERS Safety Report 6265472-9 (Version None)
Quarter: 2009Q3

REPORT INFORMATION
  Report Type: 
  Country: None (occurrence: None)
  Receive Date: 20090713
  Receipt Date: 20090701
  Transmission Date: 20100115
  Serious: Yes (Other)
  Sender: FDA-Public Use
  Company Number: IL-PFIZER INC-2009235139

PATIENT
  Age: 70 Year

DRUGS (1)
  1. SUNITINIB MALATE [Suspect]

REACTIONS (1)
  - MELAENA [None]
